FAERS Safety Report 4798212-0 (Version None)
Quarter: 2005Q4

REPORT INFORMATION
  Report Type: 
  Country: None (occurrence: None)
  Receive Date: 20051014
  Receipt Date: 20041222
  Transmission Date: 20060501
  Serious: Yes (Other)
  Sender: FDA-Public Use
  Company Number: US-BRISTOL-MYERS SQUIBB COMPANY-12805487

PATIENT

DRUGS (1)
  1. MEGACE [Suspect]
     Route: 048

REACTIONS (1)
  - OVERDOSE [None]
